FAERS Safety Report 6089337-0 (Version None)
Quarter: 2009Q1

REPORT INFORMATION
  Report Type: 
  Country: None (occurrence: None)
  Receive Date: 20090224
  Receipt Date: 20090212
  Transmission Date: 20090719
  Serious: Yes (Hospitalization)
  Sender: FDA-Public Use
  Company Number: PHHY2009GR05037

PATIENT
  Age: 4 Year
  Sex: Male

DRUGS (1)
  1. PARLODEL [Suspect]
     Dosage: 7X2.5 MG (17.5 MG)
     Route: 048
     Dates: start: 20090202, end: 20090202

REACTIONS (2)
  - ACCIDENTAL EXPOSURE [None]
  - VOMITING [None]
